FAERS Safety Report 13307833 (Version 1)
Quarter: 2017Q1

REPORT INFORMATION
  Report Type: Report from Study
  Country: US (occurrence: US)
  Receive Date: 20170308
  Receipt Date: 20170308
  Transmission Date: 20170428
  Serious: Yes (Hospitalization)
  Sender: FDA-Public Use
  Company Number: US-GILEAD-2017-0256924

PATIENT
  Age: 53 Year
  Sex: Male

DRUGS (10)
  1. ACYCLOVIR                          /00587301/ [Concomitant]
     Active Substance: ACYCLOVIR
  2. FENTANYL. [Concomitant]
     Active Substance: FENTANYL
  3. AMBRISENTAN [Suspect]
     Active Substance: AMBRISENTAN
     Indication: PULMONARY HYPERTENSION
     Dosage: 10 MG, QD
     Route: 065
     Dates: start: 20130329
  4. IBUPROFEN. [Concomitant]
     Active Substance: IBUPROFEN
  5. METHYLPRED [Concomitant]
     Active Substance: METHYLPREDNISOLONE
  6. OXYCODONE [Concomitant]
     Active Substance: OXYCODONE
  7. LORAZEPAM. [Concomitant]
     Active Substance: LORAZEPAM
  8. MEMANTINE. [Concomitant]
     Active Substance: MEMANTINE
  9. LEVOFLOXACIN. [Concomitant]
     Active Substance: LEVOFLOXACIN
  10. CLINDAMYCIN. [Concomitant]
     Active Substance: CLINDAMYCIN

REACTIONS (5)
  - Dyspnoea [Unknown]
  - Product use issue [Unknown]
  - Herpes zoster [Unknown]
  - Malaise [Unknown]
  - Chest pain [Unknown]
